FAERS Safety Report 20758110 (Version 1)
Quarter: 2022Q2

REPORT INFORMATION
  Report Type: Report from Study
  Country: US (occurrence: None)
  Receive Date: 20220427
  Receipt Date: 20220427
  Transmission Date: 20220721
  Serious: Yes (Death)
  Sender: FDA-Public Use
  Company Number: 2022A164022

PATIENT
  Sex: Male

DRUGS (2)
  1. TAGRISSO [Suspect]
     Active Substance: OSIMERTINIB
     Indication: Lung carcinoma cell type unspecified recurrent
     Route: 048
     Dates: start: 202203
  2. TAGRISSO [Suspect]
     Active Substance: OSIMERTINIB
     Indication: Bladder cancer
     Route: 048
     Dates: start: 202203

REACTIONS (1)
  - Death [Fatal]
